FAERS Safety Report 20724130 (Version 2)
Quarter: 2022Q2

REPORT INFORMATION
  Report Type: Spontaneous
  Country: PT (occurrence: PT)
  Receive Date: 20220419
  Receipt Date: 20220423
  Transmission Date: 20220720
  Serious: Yes (Death, Disabling, Other)
  Sender: FDA-Public Use
  Company Number: PT-CELLTRION INC.-2022PT004695

PATIENT

DRUGS (1)
  1. RITUXIMAB [Suspect]
     Active Substance: RITUXIMAB
     Indication: Eosinophilic granulomatosis with polyangiitis
     Route: 065

REACTIONS (5)
  - Pneumonia [Fatal]
  - Walking disability [Unknown]
  - Bladder catheter permanent [Unknown]
  - Drug effective for unapproved indication [Unknown]
  - Off label use [Unknown]
